FAERS Safety Report 5718067-7 (Version None)
Quarter: 2008Q2

REPORT INFORMATION
  Report Type: 
  Country: None (occurrence: None)
  Receive Date: 20080425
  Receipt Date: 20080416
  Transmission Date: 20081010
  Serious: Yes (Other)
  Sender: FDA-Public Use
  Company Number: US-MERCK-0705USA04129

PATIENT
  Age: 56 Year
  Sex: Female

DRUGS (3)
  1. FOSAMAX [Suspect]
     Indication: OSTEOPOROSIS
     Route: 048
     Dates: start: 19980101, end: 20020101
  2. FOSAMAX [Suspect]
     Route: 048
     Dates: start: 20020501, end: 20030601
  3. HORMONES (UNSPECIFIED) [Concomitant]
     Route: 065
     Dates: start: 19800101, end: 20050101

REACTIONS (15)
  - ANXIETY [None]
  - BUNION [None]
  - DENTAL CARIES [None]
  - DENTAL NECROSIS [None]
  - DEVICE BREAKAGE [None]
  - DRY MOUTH [None]
  - GASTRIC DISORDER [None]
  - OESOPHAGEAL DISORDER [None]
  - PAIN [None]
  - SWELLING [None]
  - TEMPOROMANDIBULAR JOINT SYNDROME [None]
  - TOOTH FRACTURE [None]
  - TOOTH LOSS [None]
  - TRISMUS [None]
  - UTERINE DISORDER [None]
